FAERS Safety Report 6419600-2 (Version None)
Quarter: 2009Q4

REPORT INFORMATION
  Report Type: 
  Country: None (occurrence: None)
  Receive Date: 20091029
  Receipt Date: 20091019
  Transmission Date: 20100525
  Serious: Yes (Life-Threatening, Hospitalization)
  Sender: FDA-Public Use
  Company Number: ZA-AVENTIS-200921559GDDC

PATIENT
  Age: 31 Year
  Sex: Female

DRUGS (4)
  1. KETEK [Suspect]
     Indication: SINUSITIS
     Route: 048
     Dates: start: 20090930, end: 20091002
  2. AVELON [Concomitant]
  3. ROCEPHIN [Concomitant]
     Route: 042
     Dates: start: 20090925, end: 20090930
  4. ESOMEPRAZOLE MAGNESIUM [Concomitant]
     Dates: start: 20090925, end: 20090930

REACTIONS (6)
  - ABDOMINAL PAIN UPPER [None]
  - ASTHENIA [None]
  - EYE HAEMORRHAGE [None]
  - FATIGUE [None]
  - HEPATITIS TOXIC [None]
  - THROMBOCYTOPENIA [None]
